FAERS Safety Report 18612642 (Version 2)
Quarter: 2021Q3

REPORT INFORMATION
  Report Type: Report from Study
  Country: CA (occurrence: CA)
  Receive Date: 20201214
  Receipt Date: 20210811
  Transmission Date: 20211014
  Serious: Yes (Hospitalization)
  Sender: FDA-Public Use
  Company Number: CA-JNJFOC-20190906587

PATIENT
  Age: 67 Year
  Sex: Male
  Weight: 91 kg

DRUGS (3)
  1. REMICADE [Suspect]
     Active Substance: INFLIXIMAB
     Indication: ERYTHEMA ANNULARE
  2. REMICADE [Suspect]
     Active Substance: INFLIXIMAB
     Indication: ANKYLOSING SPONDYLITIS
     Route: 042
     Dates: start: 20160712
  3. REMICADE [Suspect]
     Active Substance: INFLIXIMAB
     Indication: POLYCHONDRITIS

REACTIONS (5)
  - Off label use [Unknown]
  - Clostridium difficile infection [Recovering/Resolving]
  - Pneumonia [Recovering/Resolving]
  - Product use issue [Unknown]
  - Umbilical hernia [Recovering/Resolving]

NARRATIVE: CASE EVENT DATE: 20160712
